FAERS Safety Report 8449873-6 (Version None)
Quarter: 2012Q2

REPORT INFORMATION
  Report Type: 
  Country: None (occurrence: None)
  Receive Date: 20120620
  Receipt Date: 20120606
  Transmission Date: 20120825
  Serious: Yes (Other)
  Sender: FDA-Public Use
  Company Number: JP-US-EMD SERONO, INC.-7138242

PATIENT
  Sex: Female

DRUGS (2)
  1. CHORIONIC GONADOTROPIN [Concomitant]
     Indication: HYPOGONADISM MALE
     Route: 065
  2. GONAL-F [Suspect]
     Indication: HYPOGONADISM MALE
     Route: 065

REACTIONS (1)
  - ABORTION [None]
